FAERS Safety Report 10027761 (Version 3)
Quarter: 2014Q2

REPORT INFORMATION
  Report Type: Spontaneous
  Country: RO (occurrence: RO)
  Receive Date: 20140321
  Receipt Date: 20140523
  Transmission Date: 20141212
  Serious: Yes (Hospitalization, Other)
  Sender: FDA-Public Use
  Company Number: RO-ELI_LILLY_AND_COMPANY-RO201402006658

PATIENT
  Age: 43 Year
  Sex: Male
  Weight: 73 kg

DRUGS (3)
  1. ZYPADHERA [Suspect]
     Indication: SCHIZOPHRENIA
     Dosage: 405 MG, MONTHLY (1/M)
     Route: 030
     Dates: start: 201210
  2. ORFIRIL [Suspect]
     Indication: SCHIZOPHRENIA
     Dosage: 1500 MG, QD
     Route: 065
     Dates: start: 2010
  3. DIAZEPAMUM [Suspect]
     Indication: SCHIZOPHRENIA
     Dosage: 10 MG, QD
     Route: 065
     Dates: start: 2010

REACTIONS (7)
  - Dysarthria [Recovered/Resolved]
  - Gait disturbance [Recovered/Resolved]
  - Confusional state [Recovered/Resolved]
  - Disorientation [Recovered/Resolved]
  - Metabolic syndrome [Unknown]
  - Thrombocytopenia [Unknown]
  - Blood triglycerides increased [Unknown]
